FAERS Safety Report 4740899-2 (Version None)
Quarter: 2005Q3

REPORT INFORMATION
  Report Type: 
  Country: None (occurrence: None)
  Receive Date: 20050808
  Receipt Date: 20050727
  Transmission Date: 20060218
  Serious: Yes (Hospitalization, Other)
  Sender: FDA-Public Use
  Company Number: USA0507104025

PATIENT
  Age: 82 Year
  Sex: Female

DRUGS (1)
  1. INSULIN [Suspect]

REACTIONS (4)
  - ARTHRITIS [None]
  - CARDIAC OPERATION [None]
  - GLAUCOMA [None]
  - NEOPLASM MALIGNANT [None]
